FAERS Safety Report 10928069 (Version 1)
Quarter: 2015Q1

REPORT INFORMATION
  Report Type: Spontaneous
  Country: BE (occurrence: BE)
  Receive Date: 20150319
  Receipt Date: 20150319
  Transmission Date: 20150721
  Serious: Yes (Hospitalization)
  Sender: FDA-Public Use
  Company Number: BE-PFIZER INC-2015096860

PATIENT
  Age: 78 Year
  Sex: Female

DRUGS (3)
  1. PRAVASTATIN [Concomitant]
     Active Substance: PRAVASTATIN\PRAVASTATIN SODIUM
     Dosage: UNK
     Route: 048
  2. PANTOMED [Suspect]
     Active Substance: DEXPANTHENOL
     Dosage: 40 MG, DAILY
     Route: 048
     Dates: start: 2009
  3. TRITACE [Concomitant]
     Active Substance: RAMIPRIL
     Dosage: UNK

REACTIONS (4)
  - Renal tubular necrosis [Unknown]
  - Blood urea increased [Recovered/Resolved]
  - Blood creatinine increased [Recovered/Resolved]
  - Tubulointerstitial nephritis [Unknown]
